FAERS Safety Report 20979211 (Version 9)
Quarter: 2023Q4

REPORT INFORMATION
  Report Type: Report from Study
  Country: US (occurrence: US)
  Receive Date: 20220620
  Receipt Date: 20231011
  Transmission Date: 20240109
  Serious: Yes (Hospitalization, Other)
  Sender: FDA-Public Use
  Company Number: US-ABBVIE-22K-163-4354162-00

PATIENT
  Sex: Female
  Weight: 70 kg

DRUGS (6)
  1. IMBRUVICA [Suspect]
     Active Substance: IBRUTINIB
     Indication: Chronic lymphocytic leukaemia
     Dosage: FORM STRENGTH 140 MILLIGRAMS
     Route: 048
     Dates: start: 201806, end: 2019
  2. IMBRUVICA [Suspect]
     Active Substance: IBRUTINIB
     Indication: Chronic lymphocytic leukaemia
     Dosage: FORM STRENGTH 140 MILLIGRAMS
     Route: 048
  3. HYDROCHLOROTHIAZIDE [Suspect]
     Active Substance: HYDROCHLOROTHIAZIDE
     Indication: Product used for unknown indication
     Route: 065
  4. JANSSEN COVID-19 VACCINE [Suspect]
     Active Substance: AD26.COV2.S
     Indication: COVID-19 immunisation
     Dosage: ONE IN ONCE
     Route: 030
  5. MODERNA COVID-19 VACCINE [Suspect]
     Active Substance: ELASOMERAN
     Indication: COVID-19 immunisation
     Dosage: ONE IN ONCE
     Route: 030
  6. DANAZOL [Concomitant]
     Active Substance: DANAZOL
     Indication: Product used for unknown indication

REACTIONS (49)
  - Femur fracture [Recovering/Resolving]
  - Bladder dysfunction [Not Recovered/Not Resolved]
  - White blood cell count increased [Unknown]
  - Nail disorder [Recovering/Resolving]
  - Red blood cell count increased [Unknown]
  - Swelling [Recovered/Resolved]
  - Constipation [Unknown]
  - Haemoptysis [Unknown]
  - Hip fracture [Recovering/Resolving]
  - Bladder spasm [Not Recovered/Not Resolved]
  - Immunisation [Unknown]
  - Heart rate increased [Recovered/Resolved]
  - Drug hypersensitivity [Unknown]
  - Peripheral swelling [Recovered/Resolved]
  - Skin atrophy [Recovering/Resolving]
  - Lymphadenopathy [Unknown]
  - Muscle spasms [Recovering/Resolving]
  - Eye pain [Unknown]
  - Fall [Recovered/Resolved]
  - Hypertension [Recovered/Resolved]
  - Loss of bladder sensation [Not Recovered/Not Resolved]
  - Cataract [Unknown]
  - Skin fissures [Unknown]
  - Lung disorder [Recovered/Resolved]
  - Abdominal discomfort [Unknown]
  - Nerve injury [Not Recovered/Not Resolved]
  - Joint effusion [Unknown]
  - Alopecia [Recovering/Resolving]
  - Urinary incontinence [Recovering/Resolving]
  - Asthma [Unknown]
  - Hypersensitivity [Recovered/Resolved]
  - Abdominal pain upper [Recovered/Resolved]
  - Respiratory distress [Recovered/Resolved]
  - Bone pain [Unknown]
  - Phlebitis [Unknown]
  - Immunodeficiency [Unknown]
  - Learning disorder [Unknown]
  - Fall [Recovered/Resolved]
  - Emotional disorder [Unknown]
  - Mental impairment [Unknown]
  - Mobility decreased [Recovering/Resolving]
  - Diarrhoea [Unknown]
  - Rhinorrhoea [Unknown]
  - Feeling abnormal [Not Recovered/Not Resolved]
  - Blood pressure fluctuation [Not Recovered/Not Resolved]
  - Constipation [Recovered/Resolved]
  - Varicose vein [Unknown]
  - Drug ineffective [Unknown]
  - Allergy to chemicals [Unknown]

NARRATIVE: CASE EVENT DATE: 20180101
